FAERS Safety Report 4857796-4 (Version None)
Quarter: 2005Q4

REPORT INFORMATION
  Report Type: 
  Country: None (occurrence: None)
  Receive Date: 20051219
  Receipt Date: 20050406
  Transmission Date: 20060501
  Serious: No
  Sender: FDA-Public Use
  Company Number: US-GLAXOSMITHKLINE-A0552927A

PATIENT
  Age: 45 Year
  Sex: Male

DRUGS (4)
  1. NICODERM CQ [Suspect]
  2. COMMIT [Suspect]
  3. COMMIT [Concomitant]
  4. NICODERM [Concomitant]

REACTIONS (4)
  - ABDOMINAL DISTENSION [None]
  - DRUG INEFFECTIVE [None]
  - NICOTINE DEPENDENCE [None]
  - WEIGHT INCREASED [None]
